FAERS Safety Report 6553595-6 (Version None)
Quarter: 2010Q1

REPORT INFORMATION
  Report Type: 
  Country: None (occurrence: None)
  Receive Date: 20100127
  Receipt Date: 20100115
  Transmission Date: 20100710
  Serious: Yes (Other)
  Sender: FDA-Public Use
  Company Number: NL-WYE-H13077310

PATIENT
  Sex: Male

DRUGS (1)
  1. PANTOPRAZOLE [Suspect]
     Indication: BARRETT'S OESOPHAGUS
     Dosage: 40 MG, FREQUENCY UNKNOWN
     Route: 048

REACTIONS (2)
  - ANAEMIA [None]
  - VITAMIN B12 DEFICIENCY [None]
